FAERS Safety Report 21114153 (Version 1)
Quarter: 2022Q3

REPORT INFORMATION
  Report Type: Spontaneous
  Country: US (occurrence: None)
  Receive Date: 20220721
  Receipt Date: 20220721
  Transmission Date: 20221027
  Serious: No
  Sender: FDA-Public Use
  Company Number: None

PATIENT
  Age: 74 Year

DRUGS (2)
  1. NOREPINEPHRINE BITARTRATE [Suspect]
     Active Substance: NOREPINEPHRINE BITARTRATE
  2. HEPARIN [Suspect]
     Active Substance: HEPARIN SODIUM
     Dosage: OTHER STRENGTH : 25,000 UNITS/250ML;?

REACTIONS (3)
  - Wrong product administered [None]
  - Cardiac arrest [None]
  - Wrong technique in product usage process [None]
